FAERS Safety Report 9625177 (Version 2)
Quarter: 2013Q4

REPORT INFORMATION
  Report Type: Spontaneous
  Country: PT (occurrence: PT)
  Receive Date: 20131016
  Receipt Date: 20131031
  Transmission Date: 20140711
  Serious: Yes (Other)
  Sender: FDA-Public Use
  Company Number: PT-AMGEN-PRTSP2013072340

PATIENT
  Age: 49 Year
  Sex: Male

DRUGS (7)
  1. ENBREL [Suspect]
     Indication: RHEUMATOID ARTHRITIS
     Dosage: UNK
     Route: 065
     Dates: start: 200210, end: 201304
  2. SIMPONI [Suspect]
     Indication: PRODUCT USED FOR UNKNOWN INDICATION
     Dosage: UNK
     Route: 065
  3. CRESTOR [Concomitant]
     Dosage: 10 MG, UNK
  4. ZYLORIC [Concomitant]
     Dosage: 100 MG, DAILY
  5. MEDROL                             /00049601/ [Concomitant]
     Dosage: 4 MG, DAILY
  6. NEBILET [Concomitant]
     Dosage: 5 MG, DAILY
  7. OMEPRAZOL                          /00661201/ [Concomitant]
     Dosage: 20 MG, DAILY

REACTIONS (6)
  - Rash pruritic [Unknown]
  - Rash maculo-papular [Unknown]
  - Erysipelas [Recovering/Resolving]
  - Psoriasis [Recovered/Resolved]
  - Pustular psoriasis [Recovered/Resolved]
  - Injection site reaction [Recovered/Resolved]
